FAERS Safety Report 23558578 (Version 1)
Quarter: 2024Q1

REPORT INFORMATION
  Report Type: Spontaneous
  Country: US (occurrence: None)
  Receive Date: 20240222
  Receipt Date: 20240222
  Transmission Date: 20240410
  Serious: Yes (Other)
  Sender: FDA-Public Use
  Company Number: None

PATIENT
  Age: 62 Year
  Sex: Female

DRUGS (1)
  1. HUMIRA [Suspect]
     Active Substance: ADALIMUMAB
     Indication: Crohn^s disease
     Dosage: FREQUENCY : EVERY OTHER WEEK;?
     Dates: start: 20210401

REACTIONS (5)
  - Abdominal pain upper [None]
  - Anxiety [None]
  - Product use issue [None]
  - Memory impairment [None]
  - Crohn^s disease [None]

NARRATIVE: CASE EVENT DATE: 20240222
